FAERS Safety Report 5675593-7 (Version None)
Quarter: 2008Q1

REPORT INFORMATION
  Report Type: 
  Country: None (occurrence: None)
  Receive Date: 20080321
  Receipt Date: 20080312
  Transmission Date: 20080703
  Serious: Yes (Other)
  Sender: FDA-Public Use
  Company Number: US-JNJFOC-20080100170

PATIENT
  Sex: Female
  Weight: 68.95 kg

DRUGS (4)
  1. ELMIRON [Suspect]
     Indication: CYSTITIS INTERSTITIAL
     Route: 048
  2. ESCITALOPRAM OXALATE [Concomitant]
     Indication: DEPRESSION
     Route: 065
  3. TRAZODONE HCL [Concomitant]
     Indication: SLEEP DISORDER
     Route: 048
  4. UNKNOWN MEDICATION [Concomitant]
     Indication: BLADDER SPASM
     Route: 048

REACTIONS (2)
  - BLADDER SPASM [None]
  - ENTEROCOLITIS HAEMORRHAGIC [None]
